FAERS Safety Report 15318802 (Version 1)
Quarter: 2018Q3

REPORT INFORMATION
  Report Type: Spontaneous
  Country: US (occurrence: US)
  Receive Date: 20180819
  Receipt Date: 20180819
  Transmission Date: 20181010
  Serious: Yes (Disabling)
  Sender: FDA-Public Use
  Company Number: None

PATIENT
  Age: 40 Year
  Sex: Female
  Weight: 72.57 kg

DRUGS (2)
  1. MIRENA [Suspect]
     Active Substance: LEVONORGESTREL
     Dates: start: 20110502
  2. IBUPROFIN [Concomitant]
     Active Substance: IBUPROFEN

REACTIONS (15)
  - Acne [None]
  - Abdominal distension [None]
  - Incontinence [None]
  - Weight increased [None]
  - Pelvic pain [None]
  - Muscle spasms [None]
  - Anxiety [None]
  - Amnesia [None]
  - Alopecia [None]
  - Arthralgia [None]
  - Chest pain [None]
  - Dyspnoea [None]
  - Fatigue [None]
  - Back pain [None]
  - Condition aggravated [None]

NARRATIVE: CASE EVENT DATE: 20110502
